FAERS Safety Report 4289858-7 (Version None)
Quarter: 2004Q1

REPORT INFORMATION
  Report Type: 
  Country: None (occurrence: None)
  Receive Date: 20040205
  Receipt Date: 20040127
  Transmission Date: 20041129
  Serious: Yes (Hospitalization)
  Sender: FDA-Public Use
  Company Number: 200410063BNE

PATIENT
  Age: 53 Year
  Sex: Male

DRUGS (2)
  1. NIFEDIPINE [Suspect]
     Indication: HYPERTENSION
     Dosage: 10 MG, BID,  ORAL
     Route: 048
     Dates: end: 20031215
  2. METFORMIN HCL [Concomitant]

REACTIONS (2)
  - DIZZINESS [None]
  - MALAISE [None]
